FAERS Safety Report 4832502-8 (Version None)
Quarter: 2005Q4

REPORT INFORMATION
  Report Type: 
  Country: None (occurrence: None)
  Receive Date: 20051117
  Receipt Date: 20051117
  Transmission Date: 20060501
  Serious: Yes (Hospitalization)
  Sender: FDA-Public Use
  Company Number: None

PATIENT
  Age: 28 Year
  Sex: Female
  Weight: 107 kg

DRUGS (6)
  1. SERTRALINE HCL [Suspect]
     Indication: DEPRESSION
     Dosage: 100 MG DAILY PO  SEVERAL  YEARS
     Route: 048
  2. ARIPIPRAZOLE [Suspect]
     Indication: DEPRESSION
     Dosage: 10 MG AT BEDTIME DAILY PO
     Route: 048
  3. RANITIDINE [Concomitant]
  4. ALPRAZOLAM [Concomitant]
  5. ALUBUTEROL [Concomitant]
  6. ADVAIR DISKUS 100/50 [Concomitant]

REACTIONS (16)
  - ANXIETY [None]
  - BLOOD PRESSURE SYSTOLIC INCREASED [None]
  - DEHYDRATION [None]
  - DRUG INTERACTION [None]
  - EXTRAPYRAMIDAL DISORDER [None]
  - FALL [None]
  - FEELING JITTERY [None]
  - HEADACHE [None]
  - HYPERHIDROSIS [None]
  - INFLUENZA LIKE ILLNESS [None]
  - MOTOR DYSFUNCTION [None]
  - NAUSEA [None]
  - NEUROLOGICAL SYMPTOM [None]
  - TACHYCARDIA [None]
  - TREMOR [None]
  - VOMITING [None]
